FAERS Safety Report 4449113-9 (Version None)
Quarter: 2004Q3

REPORT INFORMATION
  Report Type: 
  Country: None (occurrence: None)
  Receive Date: 20040910
  Receipt Date: 20040826
  Transmission Date: 20050211
  Serious: Yes (Hospitalization)
  Sender: FDA-Public Use
  Company Number: 2004-BP-07468YA

PATIENT
  Age: 89 Year
  Sex: Male

DRUGS (1)
  1. OMIX (TAMSULOSIN HYDROCHLORIDE) (TAMSULOSIN) (TAMSULOSIN HYDROCHLORIDE [Suspect]
     Route: 048
     Dates: end: 20040727

REACTIONS (5)
  - BALANCE DISORDER [None]
  - CLAVICLE FRACTURE [None]
  - FALL [None]
  - ORTHOSTATIC HYPOTENSION [None]
  - SUPRAVENTRICULAR EXTRASYSTOLES [None]
